FAERS Safety Report 9210512 (Version 2)
Quarter: 2013Q2

REPORT INFORMATION
  Report Type: Spontaneous
  Country: US (occurrence: US)
  Receive Date: 20130404
  Receipt Date: 20130424
  Transmission Date: 20140414
  Serious: Yes (Other)
  Sender: FDA-Public Use
  Company Number: US-BRISTOL-MYERS SQUIBB COMPANY-18720672

PATIENT
  Age: 58 Year
  Sex: Female
  Weight: 62.13 kg

DRUGS (3)
  1. ORENCIA [Suspect]
     Route: 042
  2. METHOTREXATE TABS [Suspect]
     Dosage: TABS?REDUCED TO 7
  3. PREDNISONE [Concomitant]
     Dosage: DOWN TO 7MG

REACTIONS (4)
  - Cataract [Recovered/Resolved]
  - Limb injury [Not Recovered/Not Resolved]
  - Hepatic enzyme increased [Unknown]
  - Impaired healing [Unknown]
